FAERS Safety Report 7081185-8 (Version None)
Quarter: 2010Q4

REPORT INFORMATION
  Report Type: 
  Country: None (occurrence: None)
  Receive Date: 20101103
  Receipt Date: 20101027
  Transmission Date: 20110411
  Serious: Yes (Other)
  Sender: FDA-Public Use
  Company Number: US-BAYER-201032005GPV

PATIENT
  Age: 11 Year
  Sex: Male

DRUGS (3)
  1. CIPROFLOXACIN [Suspect]
     Indication: PHARYNGITIS STREPTOCOCCAL
  2. AMOXICILLIN AND CLAVULANATE POTASSIUM [Concomitant]
     Indication: PHARYNGITIS STREPTOCOCCAL
  3. ACYCLOVIR SODIUM [Concomitant]
     Indication: HERPES ZOSTER

REACTIONS (1)
  - LINEAR IGA DISEASE [None]
